FAERS Safety Report 19635441 (Version 5)
Quarter: 2024Q3

REPORT INFORMATION
  Report Type: Spontaneous
  Country: CA (occurrence: CA)
  Receive Date: 20210729
  Receipt Date: 20240830
  Transmission Date: 20241016
  Serious: Yes (Death)
  Sender: B BRAUN
  Company Number: CA-B.BRAUN MEDICAL INC.-2114426

PATIENT
  Age: 80 Year
  Sex: Male
  Weight: 69 kg

DRUGS (82)
  1. DEXTROSE [Suspect]
     Active Substance: DEXTROSE\DEXTROSE MONOHYDRATE
     Indication: Nutritional supplementation
     Route: 042
  2. ACETAMINOPHEN [Suspect]
     Active Substance: ACETAMINOPHEN
     Route: 048
  3. BETA CAROTENE [Concomitant]
     Active Substance: BETA CAROTENE
  4. Riboflavin 5-Phosphast sodium [Concomitant]
  5. DISODIUM HYDROGEN CITRATE [Concomitant]
     Active Substance: DISODIUM HYDROGEN CITRATE
  6. XANTOFYL PALMITATE [Suspect]
     Active Substance: XANTOFYL PALMITATE
     Route: 042
  7. VITAMIN K1 [Suspect]
     Active Substance: PHYTONADIONE
  8. VITAMIN E [Suspect]
     Active Substance: .ALPHA.-TOCOPHEROL
     Route: 042
  9. VITAMIN C [Suspect]
     Active Substance: ASCORBIC ACID
     Route: 042
  10. VILANTEROL TRIFENATATE [Suspect]
     Active Substance: VILANTEROL TRIFENATATE
     Route: 042
  11. SODIUM CHLORIDE [Suspect]
     Active Substance: SODIUM CHLORIDE
  12. PREVACID [Suspect]
     Active Substance: LANSOPRAZOLE
  13. POLYETHYLENE GLYCOL [Suspect]
     Active Substance: POLYETHYLENE GLYCOL
     Route: 042
  14. HERBALS\PAULLINIA CUPANA SEED [Suspect]
     Active Substance: HERBALS\PAULLINIA CUPANA SEED
     Route: 042
  15. OTRIVIN [Suspect]
     Active Substance: XYLOMETAZOLINE
     Route: 042
  16. MALTOSE [Suspect]
     Active Substance: MALTOSE
     Route: 042
  17. MAGNESIUM HYDROXIDE [Suspect]
     Active Substance: MAGNESIUM HYDROXIDE
  18. IPRATROPIUM [Suspect]
     Active Substance: IPRATROPIUM
     Route: 042
  19. UNSPECIFIED INGREDIENT [Suspect]
     Active Substance: UNSPECIFIED INGREDIENT
     Route: 042
  20. HEPARIN CALCIUM [Suspect]
     Active Substance: HEPARIN CALCIUM
     Route: 042
  21. FURAZOLIDONE [Suspect]
     Active Substance: FURAZOLIDONE
     Route: 042
  22. FLUTICASONE FUROATE\VILANTEROL TRIFENATATE [Suspect]
     Active Substance: FLUTICASONE FUROATE\VILANTEROL TRIFENATATE
     Route: 042
  23. PSYLLIUM HUSK [Suspect]
     Active Substance: PSYLLIUM HUSK
     Route: 042
  24. FENOTEROL [Suspect]
     Active Substance: FENOTEROL
     Route: 042
  25. DIPYRONE [Suspect]
     Active Substance: DIPYRONE
     Route: 042
  26. DEXTROSE AND SODIUM CHLORIDE [Suspect]
     Active Substance: DEXTROSE MONOHYDRATE\SODIUM CHLORIDE
  27. DEXILANT [Suspect]
     Active Substance: DEXLANSOPRAZOLE
  28. DALTEPARIN SODIUM [Suspect]
     Active Substance: DALTEPARIN SODIUM
     Route: 042
  29. CHLORAMPHENICOL\HYDROCORTISONE ACETATE\METRONIDAZOLE\NYSTATIN [Suspect]
     Active Substance: CHLORAMPHENICOL\HYDROCORTISONE ACETATE\METRONIDAZOLE\NYSTATIN
     Route: 042
  30. CARBOHYDRATES [Suspect]
     Active Substance: CARBOHYDRATES
     Route: 042
  31. CALCIUM CHLORIDE\DEXTROSE\POTASSIUM CHLORIDE\SODIUM CHLORIDE [Suspect]
     Active Substance: CALCIUM CHLORIDE\DEXTROSE\POTASSIUM CHLORIDE\SODIUM CHLORIDE
     Route: 042
  32. BUFEXAMAC\LIDOCAINE HYDROCHLORIDE [Suspect]
     Active Substance: BUFEXAMAC\LIDOCAINE HYDROCHLORIDE
     Route: 042
  33. BISMUTH\MAGNESIUM CARBONATE\SODIUM BICARBONATE [Suspect]
     Active Substance: BISMUTH\MAGNESIUM CARBONATE\SODIUM BICARBONATE
     Route: 042
  34. BISACODYL [Suspect]
     Active Substance: BISACODYL
     Route: 054
  35. ALUMINUM HYDROXIDE [Suspect]
     Active Substance: ALUMINUM HYDROXIDE
     Route: 042
  36. THEOPHYLLINE [Suspect]
     Active Substance: THEOPHYLLINE
     Route: 042
  37. LIDOCAINE HYDROCHLORIDE [Suspect]
     Active Substance: LIDOCAINE HYDROCHLORIDE
  38. WARFARIN [Suspect]
     Active Substance: WARFARIN
     Route: 042
  39. VILANTEROL TRIFENATATE [Suspect]
     Active Substance: VILANTEROL TRIFENATATE
     Route: 042
  40. VASOPRESSIN [Suspect]
     Active Substance: VASOPRESSIN
     Route: 042
  41. UMECLIDINIUM BROMIDE\VILANTEROL TRIFENATATE [Suspect]
     Active Substance: UMECLIDINIUM BROMIDE\VILANTEROL TRIFENATATE
     Route: 042
  42. UMECLIDINIUM BROMIDE [Suspect]
     Active Substance: UMECLIDINIUM BROMIDE
     Route: 042
  43. SODIUM PICOSULFATE [Suspect]
     Active Substance: SODIUM PICOSULFATE
     Route: 042
  44. SODIUM PHOSPHATE, MONOBASIC [Suspect]
     Active Substance: SODIUM PHOSPHATE, MONOBASIC
     Route: 042
  45. SODIUM FERRIC GLUCONATE COMPLEX [Suspect]
     Active Substance: SODIUM FERRIC GLUCONATE COMPLEX
     Route: 042
  46. TRISODIUM CITRATE DIHYDRATE [Suspect]
     Active Substance: TRISODIUM CITRATE DIHYDRATE
     Route: 042
  47. SODIUM CITRATE [Suspect]
     Active Substance: SODIUM CITRATE
  48. SIMVASTATIN [Suspect]
     Active Substance: SIMVASTATIN
     Route: 048
  49. ALBUTEROL [Suspect]
     Active Substance: ALBUTEROL
     Route: 042
  50. PYRIDOXINE HYDROCHLORIDE [Suspect]
     Active Substance: PYRIDOXINE HYDROCHLORIDE
     Route: 048
  51. PREVACID [Suspect]
     Active Substance: LANSOPRAZOLE
     Route: 042
  52. POTASSIUM CHLORIDE [Suspect]
     Active Substance: POTASSIUM CHLORIDE
  53. PHYTONADIONE [Suspect]
     Active Substance: PHYTONADIONE
     Route: 042
  54. ONDANSETRON [Suspect]
     Active Substance: ONDANSETRON
     Route: 042
  55. NOREPINEPHRINE BITARTRATE [Suspect]
     Active Substance: NOREPINEPHRINE BITARTRATE
     Route: 042
  56. SODIUM PHOSPHATE, MONOBASIC [Suspect]
     Active Substance: SODIUM PHOSPHATE, MONOBASIC
     Route: 042
  57. METRONIDAZOLE [Suspect]
     Active Substance: METRONIDAZOLE
     Route: 048
  58. MELATONIN [Suspect]
     Active Substance: MELATONIN
     Route: 042
  59. ASCORBIC ACID\PEG-3350\POTASSIUM CHLORIDE\SODIUM (ASCORBATE/CHLORIDE/S [Suspect]
     Active Substance: ASCORBIC ACID\POLYETHYLENE GLYCOL 3350\POTASSIUM CHLORIDE\SODIUM ASCORBATE\SODIUM CHLORIDE\SODIUM SU
     Route: 042
  60. POLYETHYLENE GLYCOL 3350 [Suspect]
     Active Substance: POLYETHYLENE GLYCOL 3350
     Route: 042
  61. LANTHANUM CARBONATE [Suspect]
     Active Substance: LANTHANUM CARBONATE
     Route: 048
  62. LANSOPRAZOLE [Suspect]
     Active Substance: LANSOPRAZOLE
     Route: 048
  63. IPRATROPIUM [Suspect]
     Active Substance: IPRATROPIUM
     Route: 042
  64. INSULIN DEGLUDEC [Suspect]
     Active Substance: INSULIN DEGLUDEC
     Route: 042
  65. INSULIN ASPART PROTAMINE AND INSULIN ASPART [Suspect]
     Active Substance: INSULIN ASPART
     Route: 058
  66. HYDROMORPHONE HYDROCHLORIDE [Suspect]
     Active Substance: HYDROMORPHONE HYDROCHLORIDE
     Route: 058
  67. HEPARIN SODIUM [Suspect]
     Active Substance: HEPARIN SODIUM
     Route: 042
  68. GABAPENTIN [Suspect]
     Active Substance: GABAPENTIN
     Route: 048
  69. FLUTICASONE FUROATE [Suspect]
     Active Substance: FLUTICASONE FUROATE
     Route: 042
  70. DOBUTAMINE HYDROCHLORIDE [Suspect]
     Active Substance: DOBUTAMINE HYDROCHLORIDE
     Route: 042
  71. DISTIGMINE BROMIDE [Suspect]
     Active Substance: DISTIGMINE BROMIDE
     Route: 042
  72. DALTEPARIN SODIUM [Suspect]
     Active Substance: DALTEPARIN SODIUM
     Route: 042
  73. CEFTRIAXONE SODIUM [Suspect]
     Active Substance: CEFTRIAXONE SODIUM
     Route: 042
  74. CALCITRIOL [Suspect]
     Active Substance: CALCITRIOL
     Route: 048
  75. BISACODYL [Suspect]
     Active Substance: BISACODYL
     Route: 054
  76. DOCONEXENT\MINERALS\VITAMINS [Suspect]
     Active Substance: .ALPHA.-TOCOPHEROL ACETATE, D-\.ALPHA.-TOCOPHEROL, D-\CALCIUM CARBONATE\CALCIUM FORMATE\CHOLECALCIFE
     Route: 042
  77. BETAMETHASONE [Suspect]
     Active Substance: BETAMETHASONE
     Route: 061
  78. DIETARY SUPPLEMENT\HERBALS [Suspect]
     Active Substance: DIETARY SUPPLEMENT\HERBALS
     Route: 042
  79. ATROVENT [Suspect]
     Active Substance: IPRATROPIUM BROMIDE
  80. ARANESP [Suspect]
     Active Substance: DARBEPOETIN ALFA
     Route: 042
  81. AMIODARONE HYDROCHLORIDE [Suspect]
     Active Substance: AMIODARONE HYDROCHLORIDE
     Route: 042
  82. ALLOPURINOL [Suspect]
     Active Substance: ALLOPURINOL
     Route: 048

REACTIONS (47)
  - Abdominal distension [Unknown]
  - Ulcer [Unknown]
  - Hyperlipidaemia [Unknown]
  - Gout [Unknown]
  - End stage renal disease [Unknown]
  - Drug ineffective [Unknown]
  - Chronic obstructive pulmonary disease [Unknown]
  - Aortic stenosis [Unknown]
  - Activated partial thromboplastin time prolonged [Unknown]
  - Thrombosis [Unknown]
  - Swelling [Unknown]
  - Somnolence [Unknown]
  - Sleep disorder [Unknown]
  - Pulmonary embolism [Unknown]
  - Neuralgia [Unknown]
  - Myasthenia gravis [Unknown]
  - Iron deficiency [Unknown]
  - Intentional product misuse [Unknown]
  - Incorrect route of product administration [Unknown]
  - Hyponatraemia [Unknown]
  - Hyperphosphataemia [Unknown]
  - Dry mouth [Unknown]
  - Drug intolerance [Unknown]
  - Drug hypersensitivity [Unknown]
  - Diabetes mellitus [Unknown]
  - Death [Unknown]
  - Condition aggravated [Unknown]
  - Blood uric acid increased [Unknown]
  - Blood phosphorus increased [Unknown]
  - Blood cholesterol increased [Unknown]
  - Bacterial infection [Unknown]
  - Anaemia [Unknown]
  - Ventricular fibrillation [Fatal]
  - Vomiting [Unknown]
  - Stress [Unknown]
  - Sepsis [Unknown]
  - Off label use [Unknown]
  - Nausea [Unknown]
  - Multiple organ dysfunction syndrome [Unknown]
  - Hyponatraemia [Unknown]
  - General physical health deterioration [Unknown]
  - Constipation [Unknown]
  - Cardiogenic shock [Unknown]
  - Ascites [Unknown]
  - Appendicolith [Unknown]
  - Appendicitis [Unknown]
  - Abdominal pain [Unknown]
